FAERS Safety Report 25777008 (Version 1)
Quarter: 2025Q3

REPORT INFORMATION
  Report Type: Spontaneous
  Country: CN (occurrence: CN)
  Receive Date: 20250909
  Receipt Date: 20250909
  Transmission Date: 20251021
  Serious: Yes (Hospitalization, Other)
  Sender: ROCHE
  Company Number: CN-ROCHE-10000378778

PATIENT
  Age: 72 Year
  Sex: Male

DRUGS (1)
  1. ENTRECTINIB [Suspect]
     Active Substance: ENTRECTINIB
     Indication: Lung adenocarcinoma
     Route: 065

REACTIONS (12)
  - Acute kidney injury [Unknown]
  - Urine output decreased [Unknown]
  - Oedema peripheral [Unknown]
  - Dyspnoea [Unknown]
  - Diarrhoea [Unknown]
  - Oxygen saturation decreased [Unknown]
  - N-terminal prohormone brain natriuretic peptide increased [Recovering/Resolving]
  - Electrocardiogram T wave inversion [Recovered/Resolved]
  - Bundle branch block left [Recovered/Resolved]
  - Cardiac failure [Unknown]
  - Ejection fraction decreased [Recovered/Resolved]
  - Myocarditis [Unknown]
